FAERS Safety Report 19941620 (Version 1)
Quarter: 2021Q4

REPORT INFORMATION
  Report Type: Spontaneous
  Country: US (occurrence: US)
  Receive Date: 20211011
  Receipt Date: 20211011
  Transmission Date: 20220303
  Serious: No
  Sender: FDA-Public Use
  Company Number: US-JAZZ-2021-US-016030

PATIENT
  Sex: Male

DRUGS (9)
  1. SUNOSI [Suspect]
     Active Substance: SOLRIAMFETOL
     Indication: Somnolence
     Dosage: 75 MILLIGRAM, QD
     Route: 048
     Dates: start: 202106, end: 2021
  2. SUNOSI [Suspect]
     Active Substance: SOLRIAMFETOL
     Indication: Sleep apnoea syndrome
     Dosage: 150 MILLIGRAM, QD
     Route: 048
     Dates: start: 2021, end: 202107
  3. SUNOSI [Suspect]
     Active Substance: SOLRIAMFETOL
     Dosage: 150 MG TABLET IN HALF (TWO TIMES A DAY)
     Route: 048
     Dates: start: 202107
  4. TRIBENZOR [Concomitant]
     Active Substance: AMLODIPINE BESYLATE\HYDROCHLOROTHIAZIDE\OLMESARTAN MEDOXOMIL
     Indication: Hypertension
  5. COREG [Concomitant]
     Active Substance: CARVEDILOL
     Indication: Hypertension
  6. OMEPRAZOLE [Concomitant]
     Active Substance: OMEPRAZOLE
     Indication: Gastrooesophageal reflux disease
  7. XANAX [Concomitant]
     Active Substance: ALPRAZOLAM
     Indication: Sleep disorder
  8. TIMOLOL [Concomitant]
     Active Substance: TIMOLOL
     Indication: Glaucoma
  9. LATANOPROST [Concomitant]
     Active Substance: LATANOPROST
     Indication: Glaucoma

REACTIONS (4)
  - Feeling drunk [Unknown]
  - Therapeutic response shortened [Recovered/Resolved]
  - Wrong technique in product usage process [Unknown]
  - Off label use [Unknown]

NARRATIVE: CASE EVENT DATE: 20210101
